FAERS Safety Report 6836138-9 (Version None)
Quarter: 2010Q3

REPORT INFORMATION
  Report Type: 
  Country: None (occurrence: None)
  Receive Date: 20100713
  Receipt Date: 20100701
  Transmission Date: 20110219
  Serious: Yes (Hospitalization)
  Sender: FDA-Public Use
  Company Number: US-ROCHE-713834

PATIENT
  Sex: Male

DRUGS (9)
  1. BEVACIZUMAB [Suspect]
     Route: 042
     Dates: start: 20100322
  2. BEVACIZUMAB [Suspect]
     Route: 042
  3. PEMETREXED [Suspect]
     Route: 042
     Dates: start: 20100322
  4. CARBOPLATIN [Suspect]
     Dosage: DOSE REPORTED AS 6 D/F
     Route: 042
  5. ACID FOLIC [Concomitant]
  6. PERCOCET [Concomitant]
  7. PHENERGAN [Concomitant]
  8. VITAMIN B-12 [Concomitant]
     Dates: start: 20100209
  9. DEXMETHSONE [Concomitant]
     Dates: start: 20100223

REACTIONS (2)
  - CHRONIC OBSTRUCTIVE PULMONARY DISEASE [None]
  - HAEMOPTYSIS [None]
